FAERS Safety Report 5313256-8 (Version None)
Quarter: 2007Q2

REPORT INFORMATION
  Report Type: 
  Country: None (occurrence: None)
  Receive Date: 20070501
  Receipt Date: 20070420
  Transmission Date: 20071010
  Serious: Yes (Hospitalization)
  Sender: FDA-Public Use
  Company Number: LB-JNJFOC-20070404297

PATIENT
  Sex: Male

DRUGS (2)
  1. TARIVID [Suspect]
     Indication: DRUG USE FOR UNKNOWN INDICATION
     Route: 065
  2. SINTROM [Interacting]
     Indication: ANTICOAGULANT THERAPY
     Route: 065

REACTIONS (2)
  - DRUG INTERACTION [None]
  - HAEMORRHAGE [None]
